FAERS Safety Report 15879507 (Version 1)
Quarter: 2019Q1

REPORT INFORMATION
  Report Type: Spontaneous
  Country: US (occurrence: US)
  Receive Date: 20190127
  Receipt Date: 20190127
  Transmission Date: 20190417
  Serious: No
  Sender: FDA-Public Use
  Company Number: None

PATIENT
  Age: 47 Year
  Sex: Male
  Weight: 72 kg

DRUGS (1)
  1. 500 MG CEPHALEXIN [Suspect]
     Active Substance: CEPHALEXIN
     Indication: LOCALISED INFECTION
     Dosage: ?          QUANTITY:1 CAPSULE(S);?
     Route: 048
     Dates: start: 20190126, end: 20190126

REACTIONS (5)
  - Vertigo [None]
  - Dizziness [None]
  - Nausea [None]
  - Gait disturbance [None]
  - Vomiting [None]

NARRATIVE: CASE EVENT DATE: 20190126
